FAERS Safety Report 8350870-X (Version None)
Quarter: 2012Q2

REPORT INFORMATION
  Report Type: 
  Country: None (occurrence: None)
  Receive Date: 20120510
  Receipt Date: 20120426
  Transmission Date: 20120825
  Serious: Yes (Hospitalization)
  Sender: FDA-Public Use
  Company Number: US-VERTEX PHARMACEUTICALS INC.-000000000000000619

PATIENT
  Age: 53 Year
  Sex: Female

DRUGS (3)
  1. INCIVEK [Suspect]
     Indication: HEPATITIS C
     Dosage: DOSAGE FORM: TABLET
     Route: 048
  2. RIBAVIRIN [Concomitant]
     Indication: HEPATITIS C
  3. INTERFERON [Concomitant]
     Indication: HEPATITIS C

REACTIONS (5)
  - ALOPECIA [None]
  - KIDNEY INFECTION [None]
  - NAUSEA [None]
  - ANAEMIA [None]
  - VOMITING [None]
